FAERS Safety Report 25336195 (Version 3)
Quarter: 2025Q3

REPORT INFORMATION
  Report Type: Spontaneous
  Country: US (occurrence: US)
  Receive Date: 20250520
  Receipt Date: 20250709
  Transmission Date: 20251020
  Serious: Yes (Other)
  Sender: NOVO NORDISK
  Company Number: US-NOVOPROD-1430382

PATIENT
  Age: 68 Year
  Sex: Male
  Weight: 92.517 kg

DRUGS (1)
  1. OZEMPIC [Suspect]
     Active Substance: SEMAGLUTIDE
     Indication: Type 2 diabetes mellitus
     Dosage: 0.5 MG, QW
     Route: 058
     Dates: start: 202501

REACTIONS (8)
  - Coronary arterial stent insertion [Recovered/Resolved]
  - Coronary arterial stent insertion [Recovered/Resolved]
  - Aortic arteriosclerosis [Unknown]
  - Chest pain [Recovered/Resolved]
  - Vascular stent stenosis [Unknown]
  - Patent ductus arteriosus [Unknown]
  - Angina pectoris [Unknown]
  - Bundle branch block right [Unknown]

NARRATIVE: CASE EVENT DATE: 20250103
